FAERS Safety Report 25691222 (Version 1)
Quarter: 2025Q3

REPORT INFORMATION
  Report Type: Spontaneous
  Country: US (occurrence: US)
  Receive Date: 20250818
  Receipt Date: 20250818
  Transmission Date: 20251020
  Serious: Yes (Other)
  Sender: BIOMARIN
  Company Number: US-BIOMARINAP-US-2025-168011

PATIENT
  Age: 47 Year
  Sex: Female

DRUGS (3)
  1. PALYNZIQ [Suspect]
     Active Substance: PEGVALIASE-PQPZ
     Indication: Phenylketonuria
     Dosage: 10 MILLIGRAM, QD
  2. PALYNZIQ [Suspect]
     Active Substance: PEGVALIASE-PQPZ
  3. MIRENA [Concomitant]
     Active Substance: LEVONORGESTREL
     Indication: Contraception

REACTIONS (4)
  - Dyspnoea [Unknown]
  - Chest pain [Unknown]
  - Chest discomfort [Unknown]
  - Flushing [Unknown]

NARRATIVE: CASE EVENT DATE: 20250808
